FAERS Safety Report 24288253 (Version 2)
Quarter: 2024Q3

REPORT INFORMATION
  Report Type: Spontaneous
  Country: US (occurrence: US)
  Receive Date: 20240905
  Receipt Date: 20240925
  Transmission Date: 20241017
  Serious: Yes (Hospitalization)
  Sender: BIOGEN
  Company Number: US-BIOGEN-2024BI01280481

PATIENT
  Age: 7 Year
  Sex: Male
  Weight: 36.2 kg

DRUGS (5)
  1. SPINRAZA [Suspect]
     Active Substance: NUSINERSEN
     Indication: Spinal muscular atrophy
     Dosage: MOST RECENT DOSE ADMINISTERED ON 22 AUG 2024
     Route: 050
     Dates: start: 20190724
  2. ALBUTEROL [Concomitant]
     Active Substance: ALBUTEROL
     Indication: Wheezing
     Dosage: TAKE 3 ML (2.5 MG) TOTAL BY NEBULIZATION EVERY 4 HOURS IF NEEDED
     Route: 050
  3. PULMICORT TURBUHALER [Concomitant]
     Active Substance: BUDESONIDE
     Indication: Product used for unknown indication
     Dosage: TAKE 2 ML (0.5 MG BY TOTAL) BY NEBULIZATION 2 TIMES A DAY.
     Route: 050
  4. VITAMIN D3 [Concomitant]
     Active Substance: CHOLECALCIFEROL
     Indication: Product used for unknown indication
     Dosage: 5 ML (2000 UNITS TOTAL BY MOUTH)
     Route: 050
  5. FLUOXETINE [Concomitant]
     Active Substance: FLUOXETINE HYDROCHLORIDE
     Indication: Product used for unknown indication
     Dosage: 2.5ML (10 MG TOTAL) BY MOUTH ONE TIME EACH DAY
     Route: 050

REACTIONS (6)
  - Procedural pain [Recovered/Resolved]
  - Post lumbar puncture syndrome [Recovered/Resolved]
  - Irritability [Recovered/Resolved]
  - Procedural nausea [Recovered/Resolved]
  - Food refusal [Recovered/Resolved]
  - Asthenia [Recovered/Resolved]

NARRATIVE: CASE EVENT DATE: 20240822
